FAERS Safety Report 4513786-2 (Version None)
Quarter: 2004Q4

REPORT INFORMATION
  Report Type: 
  Country: None (occurrence: None)
  Receive Date: 20041130
  Receipt Date: 20041026
  Transmission Date: 20050328
  Serious: No
  Sender: FDA-Public Use
  Company Number: US-GLAXOSMITHKLINE-A0531333A

PATIENT
  Age: 41 Year
  Sex: Female

DRUGS (5)
  1. WELLBUTRIN XL [Suspect]
     Indication: DEPRESSION
     Dosage: 300MG PER DAY
     Route: 048
     Dates: start: 20041023
  2. ABILIFY [Concomitant]
  3. UNIVASC [Concomitant]
  4. MAXZIDE [Concomitant]
  5. TOPAMAX [Concomitant]

REACTIONS (2)
  - DIZZINESS [None]
  - UNEXPECTED THERAPEUTIC DRUG EFFECT [None]
